FAERS Safety Report 4907967-3 (Version None)
Quarter: 2006Q1

REPORT INFORMATION
  Report Type: 
  Country: None (occurrence: None)
  Receive Date: 20060210
  Receipt Date: 20060131
  Transmission Date: 20060701
  Serious: Yes (Hospitalization)
  Sender: FDA-Public Use
  Company Number: 2006CG00231

PATIENT
  Age: 54 Year
  Sex: Male

DRUGS (2)
  1. MEPIVACAINE HCL [Suspect]
     Indication: LOCAL ANAESTHESIA
     Route: 053
  2. XYLOCAINE [Concomitant]
     Indication: LOCAL ANAESTHESIA
     Route: 058

REACTIONS (6)
  - AGITATION [None]
  - CONFUSIONAL STATE [None]
  - DRUG INEFFECTIVE [None]
  - DYSARTHRIA [None]
  - INCORRECT ROUTE OF DRUG ADMINISTRATION [None]
  - UNRESPONSIVE TO VERBAL STIMULI [None]
